FAERS Safety Report 25390102 (Version 2)
Quarter: 2025Q2

REPORT INFORMATION
  Report Type: Report from Study
  Country: GT (occurrence: GT)
  Receive Date: 20250603
  Receipt Date: 20250622
  Transmission Date: 20250716
  Serious: Yes (Death, Hospitalization)
  Sender: ABBVIE
  Company Number: GT-ABBVIE-6306597

PATIENT
  Age: 57 Year
  Sex: Female

DRUGS (1)
  1. VENCLEXTA [Suspect]
     Active Substance: VENETOCLAX
     Indication: Acute myeloid leukaemia
     Dosage: STRENGTH- 100 MG
     Route: 048
     Dates: start: 20250428, end: 20250526

REACTIONS (2)
  - Immunodeficiency [Fatal]
  - Hypotension [Fatal]

NARRATIVE: CASE EVENT DATE: 20250101
